FAERS Safety Report 14585191 (Version 4)
Quarter: 2018Q2

REPORT INFORMATION
  Report Type: Spontaneous
  Country: US (occurrence: US)
  Receive Date: 20180301
  Receipt Date: 20180409
  Transmission Date: 20180711
  Serious: Yes (Death, Hospitalization)
  Sender: FDA-Public Use
  Company Number: US-ROCHE-2081716

PATIENT
  Age: 62 Year
  Sex: Female
  Weight: 59.41 kg

DRUGS (17)
  1. PROLIA [Suspect]
     Active Substance: DENOSUMAB
     Indication: OSTEOPOROSIS
     Route: 058
  2. IODIDE CONTRAST MEDIUM [Concomitant]
  3. PROPRANOLOL HYDROCHLORIDE. [Concomitant]
     Active Substance: PROPRANOLOL HYDROCHLORIDE
  4. IODIDE CONTRAST MEDIUM [Concomitant]
     Indication: GOITRE
  5. LEVOTHYROXINE SODIUM. [Concomitant]
     Active Substance: LEVOTHYROXINE SODIUM
  6. BONIVA [Suspect]
     Active Substance: IBANDRONATE SODIUM
     Indication: PRODUCT USED FOR UNKNOWN INDICATION
     Route: 065
  7. PRISTIQ EXTENDED-RELEASE [Concomitant]
     Active Substance: DESVENLAFAXINE SUCCINATE
  8. FOSAMAX [Concomitant]
     Active Substance: ALENDRONATE SODIUM
     Indication: CHOKING
  9. DESOXYN [Concomitant]
     Active Substance: METHAMPHETAMINE HYDROCHLORIDE
  10. NADOLOL. [Concomitant]
     Active Substance: NADOLOL
  11. FORTEO [Concomitant]
     Active Substance: TERIPARATIDE
  12. IMITREX [Concomitant]
     Active Substance: SUMATRIPTAN SUCCINATE
  13. BUTALBITAL/CAFFEINE/PARACETAMOL [Concomitant]
     Active Substance: ACETAMINOPHEN\BUTALBITAL\CAFFEINE
  14. PROAIR HFA [Concomitant]
     Active Substance: ALBUTEROL SULFATE
  15. ERGOCALCIFEROL. [Concomitant]
     Active Substance: ERGOCALCIFEROL
  16. HYOSCYAMINE SULFATE. [Concomitant]
     Active Substance: HYOSCYAMINE SULFATE
  17. FIORICET W CODEINE [Concomitant]

REACTIONS (15)
  - Loss of consciousness [Unknown]
  - Rib fracture [Unknown]
  - Weight decreased [Unknown]
  - Tooth loss [Unknown]
  - Muscle spasms [Unknown]
  - Painful respiration [Unknown]
  - Pain in extremity [Unknown]
  - Delusion [Unknown]
  - Vertigo [Unknown]
  - Tooth fracture [Unknown]
  - Hypoglycaemia [Unknown]
  - Syncope [Unknown]
  - Amnesia [Unknown]
  - Tooth disorder [Unknown]
  - Contusion [Unknown]

NARRATIVE: CASE EVENT DATE: 201503
